FAERS Safety Report 11964066 (Version 2)
Quarter: 2016Q1

REPORT INFORMATION
  Report Type: Report from Study
  Country: US (occurrence: US)
  Receive Date: 20160126
  Receipt Date: 20160129
  Transmission Date: 20160526
  Serious: Yes (Hospitalization, Other)
  Sender: FDA-Public Use
  Company Number: US-ABBVIE-15K-163-1380133-00

PATIENT
  Age: 20 Year
  Sex: Female
  Weight: 83.99 kg

DRUGS (2)
  1. HUMIRA [Suspect]
     Active Substance: ADALIMUMAB
     Indication: CROHN^S DISEASE
     Route: 058
     Dates: start: 2013, end: 201501
  2. LEXAPRO [Concomitant]
     Active Substance: ESCITALOPRAM OXALATE
     Indication: ANXIETY

REACTIONS (2)
  - Crohn^s disease [Recovered/Resolved]
  - Abscess intestinal [Recovered/Resolved]

NARRATIVE: CASE EVENT DATE: 201411
